FAERS Safety Report 4352748-5 (Version None)
Quarter: 2004Q2

REPORT INFORMATION
  Report Type: 
  Country: None (occurrence: None)
  Receive Date: 20040429
  Receipt Date: 20040420
  Transmission Date: 20050107
  Serious: Yes (Hospitalization)
  Sender: FDA-Public Use
  Company Number: 2004-04-1158

PATIENT
  Age: 71 Year
  Sex: Female

DRUGS (1)
  1. TEMODAR [Suspect]
     Indication: BRAIN NEOPLASM
     Dosage: 300 MG QDX5 ORAL
     Route: 048
     Dates: start: 20030401

REACTIONS (3)
  - COMA [None]
  - PNEUMONIA [None]
  - PYREXIA [None]
